FAERS Safety Report 6789461-0 (Version None)
Quarter: 2010Q2

REPORT INFORMATION
  Report Type: 
  Country: None (occurrence: None)
  Receive Date: 20100624
  Receipt Date: 20100611
  Transmission Date: 20101027
  Serious: Yes (Other)
  Sender: FDA-Public Use
  Company Number: US-JNJCH-2010011157

PATIENT
  Sex: Male

DRUGS (1)
  1. ZYRTEC [Suspect]
     Indication: DRUG USE FOR UNKNOWN INDICATION
     Dosage: TEXT:UNKNOWN
     Route: 048

REACTIONS (5)
  - ABDOMINAL PAIN UPPER [None]
  - ADVERSE REACTION [None]
  - LETHARGY [None]
  - MOOD SWINGS [None]
  - PRODUCT QUALITY ISSUE [None]
